FAERS Safety Report 13109847 (Version 1)
Quarter: 2017Q1

REPORT INFORMATION
  Report Type: Spontaneous
  Country: US (occurrence: US)
  Receive Date: 20170112
  Receipt Date: 20170112
  Transmission Date: 20170428
  Serious: No
  Sender: FDA-Public Use
  Company Number: US-ROCHE-1100450

PATIENT
  Age: 56 Year
  Sex: Female

DRUGS (6)
  1. ACTIVASE [Suspect]
     Active Substance: ALTEPLASE
     Dosage: 50 CC
     Route: 065
  2. MS [Concomitant]
     Active Substance: MORPHINE SULFATE
     Route: 042
  3. MS [Concomitant]
     Active Substance: MORPHINE SULFATE
     Route: 042
  4. ACTIVASE [Suspect]
     Active Substance: ALTEPLASE
     Indication: MYOCARDIAL INFARCTION
     Route: 040
  5. MS [Concomitant]
     Active Substance: MORPHINE SULFATE
     Route: 042
  6. LIDOCAINE. [Concomitant]
     Active Substance: LIDOCAINE
     Route: 040

REACTIONS (1)
  - Headache [Unknown]
